FAERS Safety Report 7097100-7 (Version None)
Quarter: 2010Q4

REPORT INFORMATION
  Report Type: 
  Country: None (occurrence: None)
  Receive Date: 20101111
  Receipt Date: 20101108
  Transmission Date: 20110411
  Serious: Yes (Hospitalization, Disabling, Other)
  Sender: FDA-Public Use
  Company Number: US-PFIZER INC-2010103480

PATIENT
  Sex: Female

DRUGS (6)
  1. CHANTIX [Suspect]
     Indication: SMOKING CESSATION THERAPY
     Dosage: STARTER PACK
     Dates: start: 20070822, end: 20070823
  2. BUPRENORPHINE HCL AND NALOXONE HCL [Concomitant]
     Indication: DRUG DEPENDENCE
     Dosage: UNK
     Dates: start: 20060101
  3. PRILOSEC [Concomitant]
     Indication: GASTROOESOPHAGEAL REFLUX DISEASE
     Dosage: UNK
     Dates: start: 20060101, end: 20080101
  4. CLONIDINE [Concomitant]
     Indication: HOT FLUSH
     Dosage: UNK
     Dates: start: 20060101, end: 20090101
  5. AMITRIPTYLINE [Concomitant]
     Indication: FIBROMYALGIA
     Dosage: UNK
     Dates: start: 20070101
  6. SENOKOT [Concomitant]
     Indication: CONSTIPATION
     Dosage: UNK
     Dates: start: 20070101, end: 20090101

REACTIONS (27)
  - ABDOMINAL PAIN [None]
  - ARTHRITIS [None]
  - COLLAPSE OF LUNG [None]
  - COLON INJURY [None]
  - CONCUSSION [None]
  - CONVULSION [None]
  - DEEP VEIN THROMBOSIS [None]
  - DEPRESSION [None]
  - EMBOLISM VENOUS [None]
  - HIP FRACTURE [None]
  - ILEUS [None]
  - ILEUS PARALYTIC [None]
  - LACERATION [None]
  - LIVER DISORDER [None]
  - LIVER INJURY [None]
  - LOSS OF CONSCIOUSNESS [None]
  - MESENTERIC VASCULAR INSUFFICIENCY [None]
  - MOBILITY DECREASED [None]
  - OPEN WOUND [None]
  - OSTEOARTHRITIS [None]
  - PELVIC FRACTURE [None]
  - PULMONARY EMBOLISM [None]
  - PULMONARY INFARCTION [None]
  - ROAD TRAFFIC ACCIDENT [None]
  - SMALL INTESTINAL OBSTRUCTION [None]
  - VENA CAVA INJURY [None]
  - WRIST FRACTURE [None]
